FAERS Safety Report 8455067-0 (Version None)
Quarter: 2012Q2

REPORT INFORMATION
  Report Type: 
  Country: None (occurrence: None)
  Receive Date: 20120621
  Receipt Date: 20120608
  Transmission Date: 20120825
  Serious: Yes (Other)
  Sender: FDA-Public Use
  Company Number: FR-CELGENEUS-056-21880-12053263

PATIENT
  Sex: Male
  Weight: 86 kg

DRUGS (2)
  1. REVLIMID [Suspect]
     Indication: DIFFUSE LARGE B-CELL LYMPHOMA
     Dosage: 25 MILLIGRAM
     Route: 048
     Dates: start: 20111221, end: 20120525
  2. ASPIRIN [Concomitant]
     Route: 065

REACTIONS (2)
  - BLADDER CANCER [None]
  - MALIGNANT MELANOMA [None]
